FAERS Safety Report 18173016 (Version 4)
Quarter: 2020Q4

REPORT INFORMATION
  Report Type: Report from Study
  Country: US (occurrence: US)
  Receive Date: 20200819
  Receipt Date: 20201002
  Transmission Date: 20210113
  Serious: Yes (Hospitalization)
  Sender: FDA-Public Use
  Company Number: US-SEATTLE GENETICS-2020SGN03553

PATIENT
  Age: 45 Year
  Sex: Female
  Weight: 112.9 kg

DRUGS (8)
  1. ATIVAN [Concomitant]
     Active Substance: LORAZEPAM
     Indication: NAUSEA
     Dosage: 1 MG, PRN
     Route: 048
     Dates: start: 20200526
  2. PEGFILGRASTIM [Suspect]
     Active Substance: PEGFILGRASTIM
     Indication: HODGKIN^S DISEASE NODULAR SCLEROSIS STAGE II
     Dosage: 6 MG, QCYCLE
     Route: 058
     Dates: start: 20200320, end: 20200806
  3. DACARBAZINE. [Suspect]
     Active Substance: DACARBAZINE
     Indication: HODGKIN^S DISEASE NODULAR SCLEROSIS STAGE II
     Dosage: 375 MG/M2, QCYCLE
     Route: 042
     Dates: start: 20200319, end: 20200806
  4. NIVOLUMAB [Suspect]
     Active Substance: NIVOLUMAB
     Indication: HODGKIN^S DISEASE NODULAR SCLEROSIS STAGE II
     Dosage: 240 MG, QCYCLE
     Route: 042
     Dates: start: 20200319, end: 20200606
  5. BRENTUXIMAB VEDOTIN [Suspect]
     Active Substance: BRENTUXIMAB VEDOTIN
     Indication: HODGKIN^S DISEASE NODULAR SCLEROSIS STAGE II
     Dosage: 0.9 MG/KG, QCYCLE
     Route: 042
     Dates: start: 20200319, end: 20200710
  6. DOXORUBICIN [Suspect]
     Active Substance: DOXORUBICIN
     Indication: HODGKIN^S DISEASE NODULAR SCLEROSIS STAGE II
     Dosage: 25 MG/M2, QCYCLE
     Route: 042
     Dates: start: 20200319, end: 20200806
  7. FLUOXETINE [Concomitant]
     Active Substance: FLUOXETINE HYDROCHLORIDE
     Dosage: 20 MG, QD
     Route: 048
     Dates: start: 20200617
  8. ATIVAN [Concomitant]
     Active Substance: LORAZEPAM
     Indication: VOMITING

REACTIONS (2)
  - Hepatitis [Recovered/Resolved]
  - Pyrexia [Recovered/Resolved]

NARRATIVE: CASE EVENT DATE: 20200611
